FAERS Safety Report 4941296-7 (Version None)
Quarter: 2006Q1

REPORT INFORMATION
  Report Type: 
  Country: None (occurrence: None)
  Receive Date: 20060313
  Receipt Date: 20051005
  Transmission Date: 20060701
  Serious: Yes (Hospitalization)
  Sender: FDA-Public Use
  Company Number: US-MERCK-0510USA03406

PATIENT
  Age: 52 Year
  Sex: Female
  Weight: 80 kg

DRUGS (1)
  1. VIOXX [Suspect]
     Indication: ARTHRITIS
     Route: 048
     Dates: start: 20001116

REACTIONS (10)
  - ABDOMINAL PAIN [None]
  - ANGINA PECTORIS [None]
  - CHEST PAIN [None]
  - CONDITION AGGRAVATED [None]
  - DIVERTICULITIS [None]
  - EMOTIONAL DISORDER [None]
  - GASTRIC DISORDER [None]
  - HYPERTENSION [None]
  - MENSTRUATION IRREGULAR [None]
  - MENTAL DISORDER [None]
